FAERS Safety Report 5852582-0 (Version None)
Quarter: 2008Q3

REPORT INFORMATION
  Report Type: 
  Country: None (occurrence: None)
  Receive Date: 20080820
  Receipt Date: 20080820
  Transmission Date: 20090109
  Serious: Yes (Other)
  Sender: FDA-Public Use
  Company Number: None

PATIENT
  Age: 88 Year
  Sex: Female
  Weight: 65.7716 kg

DRUGS (1)
  1. VERAMYST [Suspect]
     Indication: MULTIPLE ALLERGIES
     Dosage: ONE SPRAY PER DAY INHAL, ONCE
     Route: 055
     Dates: start: 20080819, end: 20080819

REACTIONS (2)
  - DIZZINESS [None]
  - NAUSEA [None]
